FAERS Safety Report 20903559 (Version 1)
Quarter: 2022Q2

REPORT INFORMATION
  Report Type: Spontaneous
  Country: US (occurrence: US)
  Receive Date: 20220602
  Receipt Date: 20220602
  Transmission Date: 20220721
  Serious: Yes (Life-Threatening, Hospitalization, Other)
  Sender: FDA-Public Use
  Company Number: US-SUN PHARMACEUTICAL INDUSTRIES LTD-2022R1-338755

PATIENT
  Age: 48 Year
  Sex: Female

DRUGS (3)
  1. ATENOLOL [Interacting]
     Active Substance: ATENOLOL
     Indication: Hyperthyroidism
     Dosage: UNK
     Route: 065
  2. CYCLOBENZAPRINE [Interacting]
     Active Substance: CYCLOBENZAPRINE
     Indication: Back pain
     Dosage: UNK,PRN
     Route: 065
  3. METHIMAZOLE [Interacting]
     Active Substance: METHIMAZOLE
     Indication: Hyperthyroidism
     Dosage: UNK
     Route: 065

REACTIONS (6)
  - Thyrotoxic crisis [Recovered/Resolved]
  - Seizure [Not Recovered/Not Resolved]
  - Cardiomyopathy [Unknown]
  - Cardiac failure [Unknown]
  - Drug interaction [Unknown]
  - Pulmonary oedema [Unknown]
